FAERS Safety Report 12230817 (Version 2)
Quarter: 2016Q4

REPORT INFORMATION
  Report Type: Spontaneous
  Country: US (occurrence: US)
  Receive Date: 20160401
  Receipt Date: 20161116
  Transmission Date: 20170207
  Serious: Yes (Hospitalization)
  Sender: FDA-Public Use
  Company Number: US-JNJFOC-20160301384

PATIENT
  Age: 40 Year

DRUGS (1)
  1. XARELTO [Suspect]
     Active Substance: RIVAROXABAN
     Indication: THROMBOSIS
     Dosage: RIVAROXABAN VARYING DOSES OF 10-20 MG (EXACT DOSE UNKNOWN)
     Route: 048
     Dates: start: 20110101, end: 20120101

REACTIONS (4)
  - Blood urine present [Unknown]
  - Weight increased [Unknown]
  - Contusion [Unknown]
  - Rectal haemorrhage [Unknown]

NARRATIVE: CASE EVENT DATE: 20120101
